FAERS Safety Report 20767323 (Version 1)
Quarter: 2022Q2

REPORT INFORMATION
  Report Type: Spontaneous
  Country: ES (occurrence: ES)
  Receive Date: 20220429
  Receipt Date: 20220429
  Transmission Date: 20220720
  Serious: Yes (Life-Threatening)
  Sender: FDA-Public Use
  Company Number: None

PATIENT
  Age: 84 Year
  Sex: Female

DRUGS (8)
  1. PEMETREXED [Suspect]
     Active Substance: PEMETREXED
     Indication: Lung adenocarcinoma stage III
     Dosage: 830.0MG EVERY 21 DAYS, PEMETREXED (2944A), DURATION : 539 DAYS
     Route: 042
     Dates: start: 20190506, end: 20201026
  2. CALCIFEDIOL [Concomitant]
     Active Substance: CALCIFEDIOL
     Indication: Product used for unknown indication
     Dosage: 0.266 MG EVERY 30 DAYS, 10 CAPSULES (PVC/PVDC-ALUMINUM BLISTER)
     Route: 048
     Dates: start: 20200312
  3. JARDIANCE [Concomitant]
     Active Substance: EMPAGLIFLOZIN
     Indication: Diabetes mellitus
     Dosage: 10 MILLIGRAM DAILY; 10.0MG C/24H,  30 TABLETS, STRENGTH: 10 MG
     Route: 048
     Dates: start: 20190705
  4. OMEPRAZOL ALTER [Concomitant]
     Indication: Product used for unknown indication
     Dosage: 20.0 MG A-DE, OMEPRAZOL ALTER 20 MG HARD GASTRO-RESISTANT CAPSULES EFG 28 CAPSULES (BOTTLE)
     Route: 048
     Dates: start: 20100414
  5. FERBISOL [Concomitant]
     Indication: Product used for unknown indication
     Dosage: 1 DOSAGE FORMS DAILY; 1.0 CAPS EVERY 24 H AM, 50 CAPSULES
     Route: 048
     Dates: start: 20190212
  6. ACETAMINOPHEN [Concomitant]
     Active Substance: ACETAMINOPHEN
     Indication: Product used for unknown indication
     Dosage: 650.0 MG DECE, PARACETAMOL STADA 650 MG TABLETS EFG, 40 TABLETS
     Route: 048
     Dates: start: 20140731
  7. CLOBEX [Concomitant]
     Active Substance: CLOBETASOL PROPIONATE
     Indication: Rash papular
     Dosage: 7.5 ML EVERY 72 HOURS, CLOBEX 500 MICROGRAMS/G SHAMPOO, 1 BOTTLE OF 125 ML
     Route: 061
     Dates: start: 20181017
  8. CARBIDOPA\LEVODOPA [Concomitant]
     Active Substance: CARBIDOPA\LEVODOPA
     Indication: Parkinson^s disease
     Dosage: 1.0 COMP A-DECOCE, STRENGTH:  25 MG/100 MG, 100 TABLETS
     Route: 048
     Dates: start: 20180829

REACTIONS (1)
  - Haematotoxicity [Recovered/Resolved]

NARRATIVE: CASE EVENT DATE: 20201105
